FAERS Safety Report 18888840 (Version 1)
Quarter: 2021Q1

REPORT INFORMATION
  Report Type: Spontaneous
  Country: US (occurrence: US)
  Receive Date: 20210212
  Receipt Date: 20210212
  Transmission Date: 20210420
  Serious: Yes (Other)
  Sender: FDA-Public Use
  Company Number: US-ELI_LILLY_AND_COMPANY-US202102002457

PATIENT
  Sex: Male

DRUGS (4)
  1. HUMULIN R [Suspect]
     Active Substance: INSULIN HUMAN
     Indication: TYPE 1 DIABETES MELLITUS
     Dosage: 28 U, DAILY
     Route: 058
     Dates: start: 2001
  2. TOUJEO [Concomitant]
     Active Substance: INSULIN GLARGINE
     Indication: TYPE 1 DIABETES MELLITUS
     Dosage: 40 U, DAILY
  3. HUMULIN R [Suspect]
     Active Substance: INSULIN HUMAN
     Indication: TYPE 1 DIABETES MELLITUS
     Dosage: UNK UNK, UNKNOWN
     Route: 058
     Dates: start: 2001
  4. HUMULIN R [Suspect]
     Active Substance: INSULIN HUMAN
     Dosage: 28 U, DAILY
     Route: 058

REACTIONS (8)
  - Incorrect dose administered [Unknown]
  - Wrong technique in product usage process [Unknown]
  - Coeliac disease [Not Recovered/Not Resolved]
  - Salivary gland cancer [Recovered/Resolved]
  - Blood glucose increased [Not Recovered/Not Resolved]
  - Arthritis [Not Recovered/Not Resolved]
  - Hypothyroidism [Not Recovered/Not Resolved]
  - Pancreatic enzymes decreased [Not Recovered/Not Resolved]

NARRATIVE: CASE EVENT DATE: 2010
